FAERS Safety Report 5029685-6 (Version None)
Quarter: 2006Q2

REPORT INFORMATION
  Report Type: 
  Country: None (occurrence: None)
  Receive Date: 20060620
  Receipt Date: 20060612
  Transmission Date: 20061013
  Serious: Yes (Hospitalization)
  Sender: FDA-Public Use
  Company Number: FR-JNJFOC-20060602363

PATIENT
  Age: 51 Year
  Sex: Female

DRUGS (7)
  1. DURAGESIC-100 [Suspect]
     Indication: PAIN IN EXTREMITY
     Route: 062
  2. NORVIR [Concomitant]
     Route: 065
  3. REYATAZ [Concomitant]
     Route: 065
  4. VIDEX [Concomitant]
     Route: 065
  5. LEXOMIL [Concomitant]
     Route: 065
  6. BACTRIM [Concomitant]
     Route: 065
  7. BACTRIM [Concomitant]
     Route: 065

REACTIONS (5)
  - ACCIDENTAL OVERDOSE [None]
  - COMA [None]
  - HYPOTENSION [None]
  - RESPIRATORY DEPRESSION [None]
  - SOMNOLENCE [None]
